FAERS Safety Report 23392182 (Version 2)
Quarter: 2024Q1

REPORT INFORMATION
  Report Type: Spontaneous
  Country: US (occurrence: US)
  Receive Date: 20240111
  Receipt Date: 20240122
  Transmission Date: 20240410
  Serious: No
  Sender: FDA-Public Use
  Company Number: US-PFIZER INC-PV202300168740

PATIENT
  Age: 73 Year
  Sex: Female
  Weight: 101.59 kg

DRUGS (1)
  1. IBRANCE [Suspect]
     Active Substance: PALBOCICLIB
     Indication: Breast cancer metastatic
     Dosage: ONCE A DAY FOR 3 WEEKS AND THEN OFF FOR A WEEK
     Route: 048
     Dates: start: 202107

REACTIONS (1)
  - Blood test abnormal [Unknown]
